FAERS Safety Report 17269707 (Version 1)
Quarter: 2020Q1

REPORT INFORMATION
  Report Type: Spontaneous
  Country: NL (occurrence: DE)
  Receive Date: 20200114
  Receipt Date: 20200114
  Transmission Date: 20200409
  Serious: Yes (Death, Life-Threatening, Hospitalization, Other)
  Sender: FDA-Public Use
  Company Number: DE-ASTELLAS-2020US000857

PATIENT
  Age: 44 Year
  Sex: Female

DRUGS (22)
  1. AMPHOTERICIN B. [Concomitant]
     Active Substance: AMPHOTERICIN B
     Indication: PRODUCT USED FOR UNKNOWN INDICATION
     Route: 042
     Dates: start: 20040320
  2. LEVOFLOXACIN. [Concomitant]
     Active Substance: LEVOFLOXACIN
     Indication: PRODUCT USED FOR UNKNOWN INDICATION
     Route: 042
     Dates: start: 20040402, end: 20040524
  3. ITRACONAZOL [Concomitant]
     Active Substance: ITRACONAZOLE
     Indication: PROPHYLAXIS AGAINST TRANSPLANT REJECTION
     Route: 048
     Dates: start: 20040320
  4. PARACETAMOL [Concomitant]
     Active Substance: ACETAMINOPHEN
     Indication: PRODUCT USED FOR UNKNOWN INDICATION
     Route: 042
     Dates: start: 20040321, end: 20040413
  5. PANTOPRAZOL [PANTOPRAZOLE] [Concomitant]
     Active Substance: PANTOPRAZOLE
     Indication: PRODUCT USED FOR UNKNOWN INDICATION
     Route: 042
     Dates: start: 20040320
  6. CELLCEPT [Suspect]
     Active Substance: MYCOPHENOLATE MOFETIL\MYCOPHENOLATE MOFETIL HYDROCHLORIDE
     Dosage: 2000 MG, UNKNOWN FREQ. (DAILY DOSE)
     Route: 042
     Dates: end: 20040611
  7. FLUCLOXACILLIN [Concomitant]
     Active Substance: FLUCLOXACILLIN
     Indication: PRODUCT USED FOR UNKNOWN INDICATION
     Route: 042
     Dates: start: 20040331, end: 20040412
  8. GANCICLOVIR. [Concomitant]
     Active Substance: GANCICLOVIR
     Indication: PRODUCT USED FOR UNKNOWN INDICATION
     Route: 042
     Dates: start: 20040320
  9. DIAZEPAM. [Concomitant]
     Active Substance: DIAZEPAM
     Indication: PRODUCT USED FOR UNKNOWN INDICATION
     Route: 042
     Dates: start: 20040321, end: 20040411
  10. ACICLOVIR [Concomitant]
     Active Substance: ACYCLOVIR
     Indication: PRODUCT USED FOR UNKNOWN INDICATION
     Route: 042
     Dates: end: 20040608
  11. FUROSEMIDE. [Concomitant]
     Active Substance: FUROSEMIDE
     Indication: PRODUCT USED FOR UNKNOWN INDICATION
     Dosage: UNK UNK, UNKNOWN FREQ.
     Route: 050
     Dates: start: 20040320, end: 20040610
  12. METOCLOPRAMIDE. [Concomitant]
     Active Substance: METOCLOPRAMIDE
     Indication: PRODUCT USED FOR UNKNOWN INDICATION
     Route: 042
  13. SALBUTAMOL [Concomitant]
     Active Substance: ALBUTEROL
     Indication: PRODUCT USED FOR UNKNOWN INDICATION
     Route: 055
     Dates: start: 20040320
  14. ENALAPRILAT. [Concomitant]
     Active Substance: ENALAPRILAT
     Indication: PRODUCT USED FOR UNKNOWN INDICATION
     Dosage: UNK UNK, UNKNOWN FREQ.
     Route: 050
     Dates: start: 20040402, end: 20040501
  15. FLUCONAZOL [Concomitant]
     Active Substance: FLUCONAZOLE
     Indication: PRODUCT USED FOR UNKNOWN INDICATION
     Route: 042
     Dates: start: 20040331
  16. CICLOSPORIN [Suspect]
     Active Substance: CYCLOSPORINE
     Indication: PROPHYLAXIS AGAINST TRANSPLANT REJECTION
     Dosage: UNK UNK, UNKNOWN FREQ.
     Route: 042
     Dates: start: 20040321, end: 20040420
  17. PREDNISOLON [PREDNISOLONE] [Suspect]
     Active Substance: PREDNISOLONE
     Indication: PROPHYLAXIS AGAINST TRANSPLANT REJECTION
     Route: 042
     Dates: start: 20040321, end: 20040610
  18. ZENAPAX [Suspect]
     Active Substance: DACLIZUMAB
     Indication: PROPHYLAXIS AGAINST TRANSPLANT REJECTION
     Dosage: 1 MG/KG, UNKNOWN FREQ.
     Route: 042
     Dates: start: 20040319, end: 20040511
  19. KALIUMCHLORID B. BRAUN [Concomitant]
     Indication: PRODUCT USED FOR UNKNOWN INDICATION
     Dosage: UNK UNK, UNKNOWN FREQ.
     Route: 050
     Dates: start: 20040322
  20. TERBUTALINE [Concomitant]
     Active Substance: TERBUTALINE
     Indication: PRODUCT USED FOR UNKNOWN INDICATION
     Route: 042
     Dates: start: 20040331, end: 20040509
  21. TACROLIMUS. [Suspect]
     Active Substance: TACROLIMUS
     Indication: PROPHYLAXIS AGAINST TRANSPLANT REJECTION
     Dosage: UNK UNK, UNKNOWN FREQ.
     Route: 042
     Dates: start: 20040421, end: 20040611
  22. CELLCEPT [Suspect]
     Active Substance: MYCOPHENOLATE MOFETIL\MYCOPHENOLATE MOFETIL HYDROCHLORIDE
     Indication: PROPHYLAXIS AGAINST TRANSPLANT REJECTION
     Route: 042
     Dates: start: 20040321

REACTIONS (4)
  - Sepsis [Fatal]
  - Acute kidney injury [Recovered/Resolved]
  - Pneumonia [Recovered/Resolved]
  - Wound dehiscence [Recovered/Resolved]

NARRATIVE: CASE EVENT DATE: 20040410
